FAERS Safety Report 23281243 (Version 1)
Quarter: 2023Q4

REPORT INFORMATION
  Report Type: Spontaneous
  Country: ES (occurrence: ES)
  Receive Date: 20231211
  Receipt Date: 20231211
  Transmission Date: 20240110
  Serious: Yes (Other)
  Sender: FDA-Public Use
  Company Number: ES-ROCHE-3465987

PATIENT
  Sex: Female
  Weight: 90 kg

DRUGS (3)
  1. TRASTUZUMAB [Suspect]
     Active Substance: TRASTUZUMAB
     Indication: Breast cancer stage IV
     Dosage: UNK UNK, Q3WK
     Route: 065
     Dates: start: 20200124, end: 20230201
  2. PERTUZUMAB [Suspect]
     Active Substance: PERTUZUMAB
     Indication: Breast cancer stage IV
     Dosage: UNK UNK, Q3WK (55 CYCLES)
     Route: 065
     Dates: start: 20200124, end: 20230201
  3. PACLITAXEL [Suspect]
     Active Substance: PACLITAXEL
     Indication: Breast cancer stage IV
     Dosage: UNK, Q3WK
     Route: 065

REACTIONS (4)
  - Breast cancer stage IV [Unknown]
  - HER2 positive breast cancer [Unknown]
  - Drug ineffective [Unknown]
  - Off label use [Unknown]
